FAERS Safety Report 23877709 (Version 2)
Quarter: 2024Q2

REPORT INFORMATION
  Report Type: Spontaneous
  Country: US (occurrence: US)
  Receive Date: 20240521
  Receipt Date: 20240606
  Transmission Date: 20240716
  Serious: Yes (Death)
  Sender: FDA-Public Use
  Company Number: US-002147023-NVSC2024US106300

PATIENT
  Sex: Male
  Weight: 66.2 kg

DRUGS (1)
  1. PLUVICTO [Suspect]
     Active Substance: LUTETIUM LU-177 VIPIVOTIDE TETRAXETAN
     Indication: Prostate cancer
     Dosage: 200 UNK (MQI)
     Route: 042
     Dates: start: 20231214, end: 20240510

REACTIONS (4)
  - Death [Fatal]
  - Pelvic pain [Unknown]
  - Pain in extremity [Unknown]
  - Fatigue [Unknown]
